FAERS Safety Report 7784579 (Version 2)
Quarter: 2013Q1

REPORT INFORMATION
  Report Type: Report from Study
  Country: US (occurrence: US)
  Receive Date: 20110129
  Receipt Date: 20130129
  Transmission Date: 20140127
  Serious: No
  Sender: FDA-Public Use
  Company Number: US-ABBOTT-10P-163-0664408-00

PATIENT
  Age: 53 Year
  Sex: Female

DRUGS (32)
  1. HUMIRA 40 MG/0.8 ML PEN [Suspect]
     Indication: RHEUMATOID ARTHRITIS
     Dates: start: 200701
  2. ROXANOL [Concomitant]
     Indication: BREAKTHROUGH PAIN
  3. MS CONTIN [Concomitant]
     Indication: PAIN
  4. MS CONTIN [Concomitant]
  5. MORPHINE [Concomitant]
     Indication: PRODUCT USED FOR UNKNOWN INDICATION
  6. VICODIN ES [Concomitant]
     Indication: PRODUCT USED FOR UNKNOWN INDICATION
  7. CELEBREX [Concomitant]
     Indication: PRODUCT USED FOR UNKNOWN INDICATION
  8. PREDNISONE [Concomitant]
     Indication: PRODUCT USED FOR UNKNOWN INDICATION
  9. NEXIUM [Concomitant]
     Indication: PRODUCT USED FOR UNKNOWN INDICATION
  10. BACTRIM [Concomitant]
     Indication: PRODUCT USED FOR UNKNOWN INDICATION
  11. ZOLOFT [Concomitant]
     Indication: ANXIETY
  12. XANAX [Concomitant]
     Indication: PRODUCT USED FOR UNKNOWN INDICATION
  13. ATIVAN [Concomitant]
     Indication: PRODUCT USED FOR UNKNOWN INDICATION
  14. DUROGESIC PATCHES [Concomitant]
     Indication: PAIN
  15. MUCINEX [Concomitant]
     Indication: HAEMORRHAGE
  16. MUCINEX [Concomitant]
     Indication: PRODUCT USED FOR UNKNOWN INDICATION
  17. ANTI-DIARRHEAL [Concomitant]
     Indication: PRODUCT USED FOR UNKNOWN INDICATION
  18. METOPROLOL [Concomitant]
     Indication: CARDIAC DISORDER
  19. ASA [Concomitant]
     Indication: PRODUCT USED FOR UNKNOWN INDICATION
  20. FOLIC ACID [Concomitant]
     Indication: PRODUCT USED FOR UNKNOWN INDICATION
  21. LASIX [Concomitant]
     Indication: PRODUCT USED FOR UNKNOWN INDICATION
  22. IRON [Concomitant]
     Indication: ANAEMIA
  23. CRANBERRY [Concomitant]
     Indication: URINARY TRACT DISORDER
  24. NYSTATIN [Concomitant]
     Indication: PRODUCT USED FOR UNKNOWN INDICATION
  25. BREATHING MACHINE TREATMENTS [Concomitant]
     Indication: PRODUCT USED FOR UNKNOWN INDICATION
  26. SYMBICORT [Concomitant]
     Indication: PRODUCT USED FOR UNKNOWN INDICATION
  27. ANOTHER INHALER LIKE ALBUTEROL [Concomitant]
     Indication: PRODUCT USED FOR UNKNOWN INDICATION
  28. POTASSIUM [Concomitant]
     Indication: PRODUCT USED FOR UNKNOWN INDICATION
  29. VIT D [Concomitant]
     Indication: PRODUCT USED FOR UNKNOWN INDICATION
  30. CIPRO [Concomitant]
     Indication: PRODUCT USED FOR UNKNOWN INDICATION
  31. AMBIEN [Concomitant]
     Indication: PRODUCT USED FOR UNKNOWN INDICATION
  32. MULTIVITAMINS [Concomitant]
     Indication: PRODUCT USED FOR UNKNOWN INDICATION

REACTIONS (6)
  - Pruritus [Recovered/Resolved]
  - Injection site bruising [Recovered/Resolved]
  - Injection site pain [Recovered/Resolved]
  - Device malfunction [Recovered/Resolved]
  - Drug dispensing error [Recovered/Resolved]
  - Feeling abnormal [Recovered/Resolved]
